FAERS Safety Report 19746110 (Version 1)
Quarter: 2021Q3

REPORT INFORMATION
  Report Type: Other
  Country: CA (occurrence: CA)
  Receive Date: 20210826
  Receipt Date: 20210826
  Transmission Date: 20211014
  Serious: Yes (Other)
  Sender: FDA-Public Use
  Company Number: CA-CELLTRION INC.-2021CA011335

PATIENT

DRUGS (10)
  1. RITUXIMAB (UNKNOWN) [Suspect]
     Active Substance: RITUXIMAB
     Indication: GRANULOMATOSIS WITH POLYANGIITIS
     Dosage: UNK
     Route: 065
  2. PANTOPRAZOLE [Concomitant]
     Active Substance: PANTOPRAZOLE
     Dosage: 40 MILLIGRAM, 1 EVERY 1 DAYS
     Route: 065
  3. PREDNISONE. [Concomitant]
     Active Substance: PREDNISONE
     Dosage: 1 MILLIGRAM
     Route: 048
  4. DEPO?MEDROL [Concomitant]
     Active Substance: METHYLPREDNISOLONE ACETATE
     Dosage: 80 MILLIGRAM
     Route: 065
  5. SULFATRIM [Concomitant]
     Active Substance: SULFAMETHOXAZOLE\TRIMETHOPRIM
     Dosage: 80 MILLIGRAM,1 EVERY 1 DAYS
     Route: 065
  6. CYCLOPHOSPHAMIDE. [Concomitant]
     Active Substance: CYCLOPHOSPHAMIDE
  7. RITUXIMAB (UNKNOWN) [Suspect]
     Active Substance: RITUXIMAB
     Indication: VASCULITIS
     Dosage: UNK, 1 EVERY 1 WEEKS
     Route: 042
  8. AMLODIPINE [Concomitant]
     Active Substance: AMLODIPINE BESYLATE
  9. PROCYTOX [Concomitant]
     Active Substance: CYCLOPHOSPHAMIDE
  10. INSULIN [Concomitant]
     Active Substance: INSULIN NOS

REACTIONS (16)
  - Creatinine urine decreased [Unknown]
  - Body surface area increased [Unknown]
  - Total cholesterol/HDL ratio increased [Unknown]
  - Urine abnormality [Unknown]
  - Cough [Unknown]
  - Blood creatinine increased [Unknown]
  - Glycosylated haemoglobin increased [Unknown]
  - C-reactive protein [Unknown]
  - Bursitis [Unknown]
  - Urine leukocyte esterase positive [Unknown]
  - Myalgia [Unknown]
  - Sinusitis [Unknown]
  - Urine albumin/creatinine ratio increased [Unknown]
  - Blood alkaline phosphatase increased [Unknown]
  - Red cell distribution width increased [Unknown]
  - Weight increased [Unknown]
